FAERS Safety Report 20023400 (Version 1)
Quarter: 2021Q4

REPORT INFORMATION
  Report Type: Spontaneous
  Country: MA (occurrence: MA)
  Receive Date: 20211102
  Receipt Date: 20211102
  Transmission Date: 20220303
  Serious: Yes (Death, Other)
  Sender: FDA-Public Use
  Company Number: MA-PIRAMAL PHARMA LIMITED-2021-PEL-000808

PATIENT

DRUGS (3)
  1. SEVOFLURANE [Suspect]
     Active Substance: SEVOFLURANE
     Indication: Induction of anaesthesia
     Dosage: 7 PERCENT
     Route: 065
  2. SEVOFLURANE [Suspect]
     Active Substance: SEVOFLURANE
     Indication: Maintenance of anaesthesia
  3. PROPOFOL [Suspect]
     Active Substance: PROPOFOL
     Indication: Induction of anaesthesia
     Dosage: 3.5 MILLIGRAM/KILOGRAM
     Route: 065

REACTIONS (5)
  - Hepatic function abnormal [Fatal]
  - Jaundice [Fatal]
  - Lethargy [Fatal]
  - Somnolence [Fatal]
  - Unresponsive to stimuli [Fatal]
